FAERS Safety Report 5115170-X (Version None)
Quarter: 2006Q3

REPORT INFORMATION
  Report Type: 
  Country: None (occurrence: None)
  Receive Date: 20060926
  Receipt Date: 20060817
  Transmission Date: 20061208
  Serious: Yes (Death)
  Sender: FDA-Public Use
  Company Number: BE-ABBOTT-06P-013-0341072-00

PATIENT
  Sex: Female
  Weight: 53 kg

DRUGS (9)
  1. KALETRA [Suspect]
     Indication: HIV INFECTION
     Route: 048
     Dates: start: 20040426
  2. OMEPRAZOLE [Concomitant]
     Indication: OESOPHAGITIS
     Route: 048
     Dates: start: 19900501
  3. HYDROXYCHLOROQUINE PHOSPHATE [Concomitant]
     Indication: SYSTEMIC LUPUS ERYTHEMATOSUS
     Route: 048
  4. LAMIVUDINE [Concomitant]
     Indication: HIV INFECTION
     Route: 048
     Dates: start: 20040426
  5. VIREAD [Concomitant]
     Indication: HIV INFECTION
     Route: 048
     Dates: start: 20040426
  6. VENLAFAXINE HYDROCHLORIDE [Concomitant]
     Indication: DEPRESSION
     Route: 048
  7. RISPERIDONE [Concomitant]
     Indication: DEPRESSION
     Route: 048
  8. SIREQUAN [Concomitant]
     Indication: DEPRESSION
     Route: 048
  9. SUPRADYN [Concomitant]
     Indication: VITAMIN SUPPLEMENTATION
     Route: 048

REACTIONS (3)
  - CERVICAL MYELOPATHY [None]
  - RADIATION MYELOPATHY [None]
  - RESPIRATORY FAILURE [None]
